FAERS Safety Report 9376932 (Version 1)
Quarter: 2013Q3

REPORT INFORMATION
  Report Type: Spontaneous
  Country: FR (occurrence: FR)
  Receive Date: 20130701
  Receipt Date: 20130701
  Transmission Date: 20140515
  Serious: Yes (Hospitalization)
  Sender: FDA-Public Use
  Company Number: PHHY2013FR066543

PATIENT
  Age: 84 Year
  Sex: Female

DRUGS (7)
  1. EXFORGE [Suspect]
     Dosage: (160 MG VALS/ 5 MG AMLO) QD
     Route: 048
     Dates: end: 20110617
  2. SULPIRIDE [Suspect]
     Dosage: 2 DF (50 MG) DAILY
     Route: 048
     Dates: end: 20110617
  3. FURADANTINE [Suspect]
     Indication: URINARY TRACT INFECTION
     Dosage: 3 DF, (50 MG) QD
     Route: 048
     Dates: start: 20110607, end: 20110614
  4. PROTHIADEN [Suspect]
     Dosage: 75 MG QD
     Route: 048
     Dates: end: 20110617
  5. EXACYL [Suspect]
     Indication: HAEMORRHAGE
     Dosage: PUNCTUALLY, 2 TO 4 DF DAILY
     Route: 048
     Dates: end: 20110617
  6. ZOPICLONE [Concomitant]
     Dosage: 7.5 MG, QD
  7. EFFERALGAN [Concomitant]
     Indication: PAIN
     Dosage: IF NEEDED

REACTIONS (4)
  - Lung disorder [Recovered/Resolved]
  - Cough [Unknown]
  - Dyspnoea [Unknown]
  - Rales [Unknown]
